FAERS Safety Report 8535290-7 (Version None)
Quarter: 2012Q3

REPORT INFORMATION
  Report Type: 
  Country: None (occurrence: None)
  Receive Date: 20120725
  Receipt Date: 20120719
  Transmission Date: 20120928
  Serious: Yes (Hospitalization)
  Sender: FDA-Public Use
  Company Number: US-AMGEN-USASP2012045046

PATIENT
  Age: 84 Year
  Sex: Male

DRUGS (1)
  1. ENBREL [Suspect]
     Indication: PSORIASIS
     Dosage: 50 MG, QWK
     Dates: start: 20090901

REACTIONS (5)
  - FALL [None]
  - SKIN HAEMORRHAGE [None]
  - PSORIASIS [None]
  - FEMUR FRACTURE [None]
  - SKIN ATROPHY [None]
